FAERS Safety Report 6250630-X (Version None)
Quarter: 2009Q2

REPORT INFORMATION
  Report Type: 
  Country: None (occurrence: None)
  Receive Date: 20090630
  Receipt Date: 20090623
  Transmission Date: 20091009
  Serious: Yes (Death, Life-Threatening)
  Sender: FDA-Public Use
  Company Number: DE-CELGENEUS-062-21880-09050806

PATIENT
  Sex: Female
  Weight: 75 kg

DRUGS (2)
  1. REVLIMID [Suspect]
     Route: 048
     Dates: start: 20090408, end: 20090429
  2. REVLIMID [Suspect]

REACTIONS (2)
  - CARDIAC FAILURE [None]
  - LEUKAEMIC INFILTRATION EXTRAMEDULLARY [None]
